FAERS Safety Report 6084392-6 (Version None)
Quarter: 2009Q1

REPORT INFORMATION
  Report Type: 
  Country: None (occurrence: None)
  Receive Date: 20090219
  Receipt Date: 20090213
  Transmission Date: 20090719
  Serious: Yes (Death, Hospitalization)
  Sender: FDA-Public Use
  Company Number: A0769344A

PATIENT
  Age: 95 Year
  Sex: Female
  Weight: 57 kg

DRUGS (2)
  1. SERETIDE [Suspect]
     Indication: RESPIRATORY DISORDER
     Route: 055
     Dates: start: 20050101, end: 20081010
  2. SPIRIVA [Concomitant]
     Dates: start: 20050101, end: 20081010

REACTIONS (2)
  - CARDIAC ARREST [None]
  - RESPIRATORY FAILURE [None]
